FAERS Safety Report 11434174 (Version 1)
Quarter: 2015Q3

REPORT INFORMATION
  Report Type: Spontaneous
  Country: US (occurrence: None)
  Receive Date: 20150828
  Receipt Date: 20150828
  Transmission Date: 20151125
  Serious: No
  Sender: FDA-Public Use
  Company Number: None

PATIENT
  Age: 55 Year
  Sex: Male

DRUGS (13)
  1. FLUOXETINE [Concomitant]
     Active Substance: FLUOXETINE\FLUOXETINE HYDROCHLORIDE
  2. GEMFIBROZIL. [Concomitant]
     Active Substance: GEMFIBROZIL
  3. CENTRUM [Concomitant]
     Active Substance: VITAMINS
  4. ONDANSETRON [Concomitant]
     Active Substance: ONDANSETRON
  5. BACLOFEN. [Concomitant]
     Active Substance: BACLOFEN
  6. CLOPIDOGREL [Concomitant]
     Active Substance: CLOPIDOGREL BISULFATE
  7. BOSULIF [Suspect]
     Active Substance: BOSUTINIB MONOHYDRATE
     Indication: CHRONIC MYELOID LEUKAEMIA
     Route: 048
     Dates: start: 20150430, end: 201508
  8. ASPIRIN. [Concomitant]
     Active Substance: ASPIRIN
  9. ATORVASTATIN [Concomitant]
     Active Substance: ATORVASTATIN
  10. TRAZODONE [Concomitant]
     Active Substance: TRAZODONE HYDROCHLORIDE
  11. METHYLPHENID [Concomitant]
     Active Substance: METHYLPHENIDATE
  12. VESICARE [Concomitant]
     Active Substance: SOLIFENACIN SUCCINATE
  13. VICODIN [Concomitant]
     Active Substance: ACETAMINOPHEN\HYDROCODONE BITARTRATE

REACTIONS (2)
  - Drug ineffective [None]
  - Bone marrow transplant [None]

NARRATIVE: CASE EVENT DATE: 201508
